FAERS Safety Report 14316465 (Version 1)
Quarter: 2017Q4

REPORT INFORMATION
  Report Type: Report from Study
  Country: US (occurrence: US)
  Receive Date: 20171222
  Receipt Date: 20171222
  Transmission Date: 20180321
  Serious: No
  Sender: FDA-Public Use
  Company Number: US-ALEXION PHARMACEUTICALS INC.-A201714023

PATIENT
  Sex: Female

DRUGS (1)
  1. STRENSIQ [Suspect]
     Active Substance: ASFOTASE ALFA
     Indication: PRODUCT USED FOR UNKNOWN INDICATION
     Dosage: UNK
     Route: 065

REACTIONS (7)
  - Blood phosphorus increased [Unknown]
  - C-telopeptide increased [Unknown]
  - Blood albumin decreased [Unknown]
  - Vitamin D decreased [Unknown]
  - Urine phosphorus decreased [Unknown]
  - Blood alkaline phosphatase increased [Unknown]
  - Blood magnesium increased [Unknown]

NARRATIVE: CASE EVENT DATE: 20170517
